FAERS Safety Report 15214878 (Version 1)
Quarter: 2018Q3

REPORT INFORMATION
  Report Type: Spontaneous
  Country: US (occurrence: US)
  Receive Date: 20180730
  Receipt Date: 20180730
  Transmission Date: 20181010
  Serious: Yes (Other)
  Sender: FDA-Public Use
  Company Number: US-PFIZER INC-2018299793

PATIENT
  Age: 26 Year
  Sex: Female

DRUGS (2)
  1. FENTANYL CITRATE. [Suspect]
     Active Substance: FENTANYL CITRATE
     Dosage: UNK
  2. U?47700 [Suspect]
     Active Substance: U-47700
     Dosage: UNK

REACTIONS (4)
  - Road traffic accident [Unknown]
  - Hypopnoea [Unknown]
  - Leukoencephalopathy [Unknown]
  - Overdose [Unknown]
